FAERS Safety Report 7069600-7 (Version None)
Quarter: 2010Q4

REPORT INFORMATION
  Report Type: 
  Country: None (occurrence: None)
  Receive Date: 20101028
  Receipt Date: 20100408
  Transmission Date: 20110411
  Serious: No
  Sender: FDA-Public Use
  Company Number: US-WYE-H14527410

PATIENT

DRUGS (3)
  1. PROTONIX [Suspect]
     Indication: GASTROOESOPHAGEAL REFLUX DISEASE
     Dosage: ^UP TO 120 MG OR MORE AS NEEDED^
     Route: 048
     Dates: end: 20100301
  2. TUMS [Concomitant]
  3. PERCOCET [Concomitant]

REACTIONS (1)
  - DRUG SCREEN FALSE POSITIVE [None]
